FAERS Safety Report 9761082 (Version 1)
Quarter: 2013Q4

REPORT INFORMATION
  Report Type: Spontaneous
  Country: US (occurrence: None)
  Receive Date: 20131212
  Receipt Date: 20131212
  Transmission Date: 20140711
  Serious: Yes (Other)
  Sender: FDA-Public Use
  Company Number: 2013-US-003254

PATIENT
  Age: 46 Year
  Sex: Male

DRUGS (4)
  1. XYREM (SODIUM OXYBATE) ORAL SOLUTION, 500MG/ML [Suspect]
     Indication: NARCOLEPSY
     Route: 048
     Dates: start: 201309, end: 2013
  2. TRICOR (ADENOSINE) [Concomitant]
  3. SIMVASTATIN [Concomitant]
  4. HYDROCHLOROATHIAZIDE [Concomitant]

REACTIONS (3)
  - Chest pain [None]
  - Blood pressure increased [None]
  - Liver function test abnormal [None]
